FAERS Safety Report 9308643 (Version 2)
Quarter: 2013Q2

REPORT INFORMATION
  Report Type: Spontaneous
  Country: US (occurrence: US)
  Receive Date: 20130524
  Receipt Date: 20130611
  Transmission Date: 20140414
  Serious: Yes (Life-Threatening)
  Sender: FDA-Public Use
  Company Number: US-SPECTRUM PHARMACEUTICALS, INC.-13-Z-US-00163

PATIENT
  Age: 59 Year
  Sex: Male
  Weight: 78 kg

DRUGS (1)
  1. ZEVALIN [Suspect]
     Indication: NON-HODGKIN^S LYMPHOMA
     Dosage: 3.2MG/2ML, SINGLE
     Route: 042
     Dates: start: 201011, end: 201011

REACTIONS (1)
  - Disease progression [Not Recovered/Not Resolved]
